FAERS Safety Report 4424033-4 (Version None)
Quarter: 2004Q3

REPORT INFORMATION
  Report Type: 
  Country: None (occurrence: None)
  Receive Date: 20040805
  Receipt Date: 20040729
  Transmission Date: 20050211
  Serious: Yes (Other)
  Sender: FDA-Public Use
  Company Number: HQWYE599029JUL04

PATIENT
  Age: 74 Year
  Sex: Male

DRUGS (4)
  1. AMIODARONE HCL [Suspect]
     Indication: ATRIAL FIBRILLATION
     Dates: start: 20000101
  2. GRAPEFRUIT JUICE (CITRUS PARADISI FRUIT JUICE,) [Suspect]
  3. HYTRIN [Concomitant]
  4. FINASTERIDE [Concomitant]

REACTIONS (5)
  - DYSSTASIA [None]
  - FOOD INTERACTION [None]
  - HYPOTENSION [None]
  - SYNCOPE [None]
  - VISUAL ACUITY REDUCED [None]
